FAERS Safety Report 15586977 (Version 1)
Quarter: 2018Q4

REPORT INFORMATION
  Report Type: Other
  Country: SE (occurrence: SE)
  Receive Date: 20181105
  Receipt Date: 20181105
  Transmission Date: 20190205
  Serious: Yes (Other)
  Sender: FDA-Public Use
  Company Number: SE-PROVELL PHARMACEUTICALS-2058419

PATIENT
  Sex: Female

DRUGS (16)
  1. IRINOTECAN [Suspect]
     Active Substance: IRINOTECAN
  2. DEXAMETHASONE. [Suspect]
     Active Substance: DEXAMETHASONE
  3. HYDROCODONE W/PARACETAMOL(PROCET ) [Suspect]
     Active Substance: ACETAMINOPHEN\HYDROCODONE
  4. PINDOLOL. [Suspect]
     Active Substance: PINDOLOL
  5. TOLTERODINE [Suspect]
     Active Substance: TOLTERODINE
  6. CITALOPRAM [Suspect]
     Active Substance: CITALOPRAM HYDROBROMIDE
  7. EUTHYROX [Suspect]
     Active Substance: LEVOTHYROXINE SODIUM
     Indication: PRODUCT USED FOR UNKNOWN INDICATION
  8. FLUTICASONE. [Suspect]
     Active Substance: FLUTICASONE
  9. METHYLPHENOBARBITAL W/PHENYTOIN(MATHOINE) [Suspect]
     Active Substance: MEPHOBARBITAL\PHENYTOIN
  10. OMEPRAZOLE. [Suspect]
     Active Substance: OMEPRAZOLE
  11. TRAZODONE [Suspect]
     Active Substance: TRAZODONE HYDROCHLORIDE
  12. BUPROPION. [Suspect]
     Active Substance: BUPROPION
  13. TEMOZOLOMIDE. [Suspect]
     Active Substance: TEMOZOLOMIDE
  14. FEXOFENADINE [Suspect]
     Active Substance: FEXOFENADINE\FEXOFENADINE HYDROCHLORIDE
  15. BEVACIZUMAB. [Suspect]
     Active Substance: BEVACIZUMAB
  16. SIMVASTATIN. [Suspect]
     Active Substance: SIMVASTATIN

REACTIONS (6)
  - Sepsis [Unknown]
  - Haemoglobin abnormal [Unknown]
  - Oesophagitis [Unknown]
  - Urinary tract infection [Unknown]
  - White blood cell count abnormal [Unknown]
  - Neutrophil count abnormal [Unknown]
